FAERS Safety Report 21578929 (Version 4)
Quarter: 2025Q2

REPORT INFORMATION
  Report Type: Spontaneous
  Country: US (occurrence: US)
  Receive Date: 20221110
  Receipt Date: 20250528
  Transmission Date: 20250717
  Serious: No
  Sender: SANOFI AVENTIS
  Company Number: US-SA-SAC20221107001088

PATIENT
  Age: 18 Year
  Sex: Female
  Weight: 56.6 kg

DRUGS (1)
  1. DUPIXENT [Suspect]
     Active Substance: DUPILUMAB
     Indication: Dermatitis atopic
     Dosage: 300 MG, QOW
     Route: 058
     Dates: start: 20220901, end: 2025

REACTIONS (9)
  - Dry skin [Unknown]
  - Sleep disorder [Not Recovered/Not Resolved]
  - Pruritus [Unknown]
  - Injection site pain [Recovered/Resolved]
  - Eczema [Recovered/Resolved]
  - Therapeutic response decreased [Unknown]
  - Dermatitis atopic [Recovered/Resolved]
  - Product dose omission issue [Unknown]
  - Surgery [Unknown]

NARRATIVE: CASE EVENT DATE: 20240501
